FAERS Safety Report 19363680 (Version 5)
Quarter: 2021Q3

REPORT INFORMATION
  Report Type: Spontaneous
  Country: AT (occurrence: AT)
  Receive Date: 20210603
  Receipt Date: 20210729
  Transmission Date: 20211014
  Serious: Yes (Hospitalization, Other)
  Sender: FDA-Public Use
  Company Number: AT-BRISTOL-MYERS SQUIBB COMPANY-BMS-2021-053629

PATIENT
  Age: 72 Year
  Sex: Female

DRUGS (15)
  1. PANTOLOC [Concomitant]
     Active Substance: PANTOPRAZOLE SODIUM
     Indication: PRODUCT USED FOR UNKNOWN INDICATION
     Dosage: 40 MILLIGRAM
     Route: 048
     Dates: start: 202009
  2. SORTIS [Interacting]
     Active Substance: ATORVASTATIN
     Indication: MYOCARDIAL INFARCTION
  3. TOREM [TORASEMIDE] [Concomitant]
     Active Substance: TORSEMIDE
     Indication: EJECTION FRACTION ABNORMAL
     Dosage: 10 MILLIGRAM
     Route: 048
     Dates: start: 201101
  4. PRALUENT [Concomitant]
     Active Substance: ALIROCUMAB
     Indication: HYPERCHOLESTEROLAEMIA
     Dosage: EVERY 14 DAYS 150 MG
     Route: 058
     Dates: start: 20210601
  5. SORTIS [Interacting]
     Active Substance: ATORVASTATIN
     Indication: HEART TRANSPLANT
     Dosage: 80 MILLIGRAM, QD
     Route: 048
     Dates: start: 201601, end: 20210525
  6. EZETROL [Interacting]
     Active Substance: EZETIMIBE
     Indication: MYOCARDIAL INFARCTION
     Dosage: 80 MILLIGRAM
     Route: 048
     Dates: start: 201601
  7. SANDIMMUN [Interacting]
     Active Substance: CYCLOSPORINE
     Indication: HEART TRANSPLANT
     Dosage: 50 MILLIGRAM, BID
     Route: 048
  8. RAMIPRIL. [Concomitant]
     Active Substance: RAMIPRIL
     Indication: HYPERTENSION
     Dosage: 2.5 MILLIGRAM
     Route: 048
     Dates: start: 202011
  9. UROSIN [ALLOPURINOL] [Concomitant]
     Indication: HYPERURICAEMIA
     Dosage: 100 MILLIGRAM
     Route: 048
     Dates: start: 202105
  10. CELLCEPT [Concomitant]
     Active Substance: MYCOPHENOLATE MOFETIL\MYCOPHENOLATE MOFETIL HYDROCHLORIDE
     Indication: HEART TRANSPLANT
     Dosage: 2000 MILLIGRAM
     Route: 048
     Dates: start: 1994
  11. ELIQUIS [Suspect]
     Active Substance: APIXABAN
     Indication: CEREBROVASCULAR ACCIDENT PROPHYLAXIS
     Dosage: 5 MILLIGRAM, BID
     Route: 048
     Dates: start: 20210505
  12. EZETROL [Interacting]
     Active Substance: EZETIMIBE
     Indication: HEART TRANSPLANT
     Dosage: 10 MILLIGRAM, QD
     Route: 048
     Dates: start: 201101, end: 20210601
  13. EZETROL [Interacting]
     Active Substance: EZETIMIBE
     Indication: HEART TRANSPLANT
  14. CONCOR [Concomitant]
     Active Substance: BISOPROLOL FUMARATE
     Indication: ATRIAL FIBRILLATION
     Dosage: 3.75 MG
     Route: 048
     Dates: start: 201202
  15. SPASMOLYT [Concomitant]
     Active Substance: TROSPIUM CHLORIDE
     Indication: MICTURITION DISORDER
     Dosage: 60 MILLIGRAM
     Route: 048
     Dates: start: 20210610

REACTIONS (3)
  - Rhabdomyolysis [Recovered/Resolved]
  - Paraparesis [Recovered/Resolved]
  - Drug interaction [Unknown]

NARRATIVE: CASE EVENT DATE: 20210522
